FAERS Safety Report 6018083-4 (Version None)
Quarter: 2008Q4

REPORT INFORMATION
  Report Type: 
  Country: None (occurrence: None)
  Receive Date: 20081223
  Receipt Date: 20081222
  Transmission Date: 20090506
  Serious: Yes (Hospitalization)
  Sender: FDA-Public Use
  Company Number: FR-WYE-H07386308

PATIENT
  Sex: Male

DRUGS (4)
  1. INIPOMP [Suspect]
     Dosage: UNKNOWN
     Dates: start: 20081001, end: 20081105
  2. PIASCLEDINE [Concomitant]
     Indication: BONE DISORDER
     Dosage: UNKNOWN
     Route: 048
     Dates: end: 20081105
  3. APROVEL [Concomitant]
     Indication: HYPERTENSION
     Dosage: UNKNOWN
  4. FORADIL [Concomitant]
     Indication: CHRONIC OBSTRUCTIVE PULMONARY DISEASE
     Dosage: UNKNOWN
     Route: 055
     Dates: end: 20081105

REACTIONS (4)
  - GINGIVAL BLEEDING [None]
  - MOUTH HAEMORRHAGE [None]
  - PURPURA [None]
  - THROMBOCYTOPENIA [None]
